FAERS Safety Report 15536018 (Version 1)
Quarter: 2018Q4

REPORT INFORMATION
  Report Type: Spontaneous
  Country: US (occurrence: US)
  Receive Date: 20181015
  Receipt Date: 20181015
  Transmission Date: 20190205
  Serious: No
  Sender: FDA-Public Use
  Company Number: None

PATIENT
  Age: 7 Month
  Sex: Male

DRUGS (1)
  1. MYCOPHENOLAT MOF CAP 250 MG [Suspect]
     Active Substance: MYCOPHENOLATE MOFETIL
     Dates: start: 20170628

REACTIONS (1)
  - Off label use [None]

NARRATIVE: CASE EVENT DATE: 20181013
